FAERS Safety Report 7351139-2 (Version None)
Quarter: 2011Q1

REPORT INFORMATION
  Report Type: 
  Country: None (occurrence: None)
  Receive Date: 20110314
  Receipt Date: 20110303
  Transmission Date: 20110831
  Serious: Yes (Hospitalization)
  Sender: FDA-Public Use
  Company Number: US-CELGENEUS-163-21880-10120316

PATIENT
  Sex: Male
  Weight: 77.11 kg

DRUGS (22)
  1. DULOXETINE HYDROCHLORIDE [Concomitant]
     Dosage: 60 MILLIGRAM
     Route: 065
  2. ASPIRIN [Concomitant]
     Dosage: 325 MILLIGRAM
     Route: 048
     Dates: start: 20070526
  3. HYDROCODONE BITARTRATE + ACETAMINOPHEN [Concomitant]
     Dosage: 5MG/500MG
     Route: 048
     Dates: start: 20100305
  4. AMITRIPTYLINE HYDROCHLORIDE [Concomitant]
     Dosage: 100 MILLIGRAM
     Route: 065
     Dates: start: 20101215
  5. CYCLOBENZAPRINE HYDROCHLORIDE [Concomitant]
     Dosage: 10 MILLIGRAM
     Route: 048
  6. CLOPIDOGREL [Concomitant]
     Dosage: 75 MILLIGRAM
     Route: 048
     Dates: start: 20110214
  7. MEDROL [Concomitant]
     Dosage: 40 MILLIGRAM
     Route: 065
     Dates: start: 20101105
  8. METOPROLOL TARTRATE AND HYDROCHLOROTHIAZIDE [Concomitant]
     Dosage: 25 MILLIGRAM
     Route: 065
  9. LORAZEPAM [Concomitant]
     Dosage: 1 MILLIGRAM
     Route: 048
     Dates: start: 20110210
  10. REVLIMID [Suspect]
     Indication: MULTIPLE MYELOMA
     Dosage: 5 MILLIGRAM
     Route: 048
     Dates: start: 20101105, end: 20101221
  11. ONDANSETRON [Concomitant]
     Dosage: 8 MILLIGRAM
     Route: 048
     Dates: start: 20101228
  12. PANTOPRAZOLE [Concomitant]
     Dosage: 40 MILLIGRAM
     Route: 048
     Dates: start: 20110131
  13. NITROGLYCERIN [Concomitant]
     Dosage: .4 MILLIGRAM
     Route: 065
  14. POLYETHYLENE GLYCOL [Concomitant]
     Dosage: 17 GRAM
     Route: 065
     Dates: start: 20100305
  15. HYDROXYZINE PAMOATE [Concomitant]
     Dosage: 25 MILLIGRAM
     Route: 065
     Dates: start: 20100518
  16. CLONAZEPAM [Concomitant]
     Dosage: 1 MILLIGRAM
     Route: 065
  17. CYCLOBENZAPRINE HYDROCHLORIDE [Concomitant]
     Dosage: 150 MILLIGRAM
     Route: 065
  18. DEXAMETHASONE [Suspect]
     Route: 065
  19. ZOLPIDEM TARTRATE CR [Concomitant]
     Dosage: 12.5 MILLIGRAM
     Route: 048
     Dates: start: 20100601
  20. PROCHLORPERAZINE [Concomitant]
     Dosage: 10 MILLIGRAM
     Route: 065
     Dates: start: 20101203
  21. ATORVASTATIN CALCIUM [Concomitant]
     Dosage: 20 MILLIGRAM
     Route: 065
  22. PROMETHAZINE HCL [Concomitant]
     Dosage: 25 MILLIGRAM
     Route: 065
     Dates: start: 20101215

REACTIONS (4)
  - INTESTINAL OBSTRUCTION [None]
  - SECONDARY IMMUNODEFICIENCY [None]
  - NAUSEA [None]
  - ENTERITIS [None]
